FAERS Safety Report 24806104 (Version 2)
Quarter: 2025Q1

REPORT INFORMATION
  Report Type: Spontaneous
  Country: US (occurrence: US)
  Receive Date: 20250103
  Receipt Date: 20250123
  Transmission Date: 20250408
  Serious: Yes (Other)
  Sender: SAREPTA THERAPEUTICS
  Company Number: US-SAREPTA THERAPEUTICS INC.-SRP2024-005442

PATIENT
  Age: 15 Year

DRUGS (3)
  1. ELEVIDYS [Suspect]
     Active Substance: DELANDISTROGENE MOXEPARVOVEC-ROKL
     Indication: Product used for unknown indication
     Route: 042
     Dates: start: 20241112, end: 20241112
  2. PREDNISONE [Concomitant]
     Active Substance: PREDNISONE
     Indication: Product used for unknown indication
     Dosage: 1 MG/KG/DAY
  3. PREDNISONE [Concomitant]
     Active Substance: PREDNISONE
     Dosage: 2 MG/KG/DAY

REACTIONS (1)
  - Liver injury [Unknown]

NARRATIVE: CASE EVENT DATE: 20241226
